FAERS Safety Report 22366356 (Version 1)
Quarter: 2023Q2

REPORT INFORMATION
  Report Type: Spontaneous
  Country: US (occurrence: None)
  Receive Date: 20230524
  Receipt Date: 20230524
  Transmission Date: 20230722
  Serious: Yes (Death, Hospitalization)
  Sender: FDA-Public Use
  Company Number: None

PATIENT
  Age: 30 Year
  Sex: Male
  Weight: 75.6 kg

DRUGS (2)
  1. HERBALS\MITRAGYNINE [Suspect]
     Active Substance: HERBALS\MITRAGYNINE
     Dosage: OTHER QUANTITY : 500 CAPSULE(S);?FREQUENCY : DAILY;?
     Route: 048
  2. Olanzapine for30 days only [Concomitant]

REACTIONS (7)
  - Substance use [None]
  - Accidental death [None]
  - Hallucination, auditory [None]
  - Hallucination, visual [None]
  - Confusional state [None]
  - Euphoric mood [None]
  - Product use issue [None]

NARRATIVE: CASE EVENT DATE: 20220811
